FAERS Safety Report 18778542 (Version 5)
Quarter: 2021Q2

REPORT INFORMATION
  Report Type: Report from Study
  Country: BR (occurrence: BR)
  Receive Date: 20210123
  Receipt Date: 20210618
  Transmission Date: 20210717
  Serious: Yes (Other)
  Sender: FDA-Public Use
  Company Number: NVSC2021BR014633

PATIENT
  Age: 81 Year
  Sex: Female
  Weight: 78 kg

DRUGS (4)
  1. KISQALI [Suspect]
     Active Substance: RIBOCICLIB
     Indication: BREAST CANCER METASTATIC
     Dosage: 3 DF (21 DAYS AND BREAK OF 7 DAYS)
     Route: 065
     Dates: start: 202012
  2. ANASTROZOL [Concomitant]
     Active Substance: ANASTROZOLE
     Indication: PRODUCT USED FOR UNKNOWN INDICATION
     Dosage: UNK
     Route: 065
  3. KISQALI [Suspect]
     Active Substance: RIBOCICLIB
     Dosage: 600 MG  (21 DAYS)
     Route: 048
     Dates: start: 202101
  4. KISQALI [Suspect]
     Active Substance: RIBOCICLIB
     Dosage: UNK
     Route: 065
     Dates: start: 20210115

REACTIONS (6)
  - Dysentery [Unknown]
  - Fluid intake reduced [Unknown]
  - Eating disorder [Unknown]
  - Depression [Recovering/Resolving]
  - Diarrhoea [Recovering/Resolving]
  - Faeces soft [Recovering/Resolving]

NARRATIVE: CASE EVENT DATE: 202101
